FAERS Safety Report 17142365 (Version 1)
Quarter: 2019Q4

REPORT INFORMATION
  Report Type: Spontaneous
  Country: US (occurrence: US)
  Receive Date: 20191211
  Receipt Date: 20191211
  Transmission Date: 20200122
  Serious: Yes (Other)
  Sender: FDA-Public Use
  Company Number: US-BRISTOL-MYERS SQUIBB COMPANY-BMS-2019-118497

PATIENT
  Age: 99 Year
  Sex: Female

DRUGS (1)
  1. ELIQUIS [Suspect]
     Active Substance: APIXABAN
     Indication: MYOCARDIAL INFARCTION
     Dosage: UNAVAILABLE
     Route: 065

REACTIONS (3)
  - Tracheomalacia [Unknown]
  - Pharyngeal haemorrhage [Unknown]
  - Pharyngeal mass [Unknown]
